FAERS Safety Report 8957686 (Version 1)
Quarter: 2012Q4

REPORT INFORMATION
  Report Type: 
  Country: FR (occurrence: FR)
  Receive Date: 20121211
  Receipt Date: 20121211
  Transmission Date: 20130627
  Serious: Yes (Hospitalization)
  Sender: FDA-Public Use
  Company Number: FR-009507513-1212FRA003228

PATIENT
  Age: 58 Year
  Sex: Female

DRUGS (3)
  1. EMEND [Suspect]
     Indication: PREMEDICATION
     Dosage: 120 mg, Once
     Route: 048
     Dates: start: 20120927
  2. CETIRIZINE HYDROCHLORIDE [Suspect]
     Indication: PREMEDICATION
     Dosage: 10 mg, Once
     Route: 048
     Dates: start: 20120927
  3. RANIPLEX [Suspect]
     Indication: PREMEDICATION
     Dosage: 150 mg, Once
     Route: 042
     Dates: start: 20120927

REACTIONS (2)
  - Hypovolaemia [Recovered/Resolved]
  - Hypotension [Recovered/Resolved]
